FAERS Safety Report 5846000-6 (Version None)
Quarter: 2008Q3

REPORT INFORMATION
  Report Type: 
  Country: None (occurrence: None)
  Receive Date: 20080813
  Receipt Date: 20080805
  Transmission Date: 20090109
  Serious: Yes (Other)
  Sender: FDA-Public Use
  Company Number: CHPA2008US11792

PATIENT
  Age: 59 Year
  Sex: Female

DRUGS (1)
  1. MAALOX ANTACID/ANTI-GAS [Suspect]
     Indication: DYSPEPSIA
     Dosage: 1 TSP, TID, ORAL
     Route: 048
     Dates: start: 20080714, end: 20080714

REACTIONS (6)
  - BLOOD PRESSURE DECREASED [None]
  - DECREASED APPETITE [None]
  - DEPRESSION [None]
  - DIZZINESS [None]
  - NAUSEA [None]
  - SUICIDAL IDEATION [None]
